FAERS Safety Report 4653145-5 (Version None)
Quarter: 2005Q2

REPORT INFORMATION
  Report Type: 
  Country: None (occurrence: None)
  Receive Date: 20050503
  Receipt Date: 20050420
  Transmission Date: 20051028
  Serious: Yes (Hospitalization)
  Sender: FDA-Public Use
  Company Number: 2005062966

PATIENT
  Age: 72 Year
  Sex: Male
  Weight: 89.8122 kg

DRUGS (13)
  1. BEXTRA [Suspect]
     Indication: ARTHRALGIA
  2. CELEBREX [Suspect]
     Indication: ARTHRALGIA
  3. ROFECOXIB [Suspect]
     Indication: ARTHRALGIA
  4. ACETYLSALICYLIC AICD (ACETYLSALICYLIC ACID) [Suspect]
     Indication: ARTHRALGIA
     Dosage: 81 MG (81 MG, 1 IN 1 D)
     Dates: start: 19990101
  5. ROSIGLITAZONE MALEATE [Concomitant]
  6. ATORVASTATIN CALCIUM [Concomitant]
  7. MULTIVIT (VITAMINS NOS) [Concomitant]
  8. FLUCONAZOLE [Concomitant]
  9. RAMIPRIL [Concomitant]
  10. BACTM (SULFAMETHOXAZOLE, TRIMETHOPRIM) [Concomitant]
  11. TRAZODONE HCL [Concomitant]
  12. ACETAMINOPHEN [Concomitant]
  13. VARDENAFIL (VARDENAFIL) [Concomitant]

REACTIONS (7)
  - AZOTAEMIA [None]
  - DIZZINESS [None]
  - FAECES DISCOLOURED [None]
  - HAEMOGLOBIN DECREASED [None]
  - HEADACHE [None]
  - ULCER HAEMORRHAGE [None]
  - VOLUME BLOOD DECREASED [None]
